FAERS Safety Report 5255835-2 (Version None)
Quarter: 2007Q1

REPORT INFORMATION
  Report Type: 
  Country: None (occurrence: None)
  Receive Date: 20070301
  Receipt Date: 20070226
  Transmission Date: 20070707
  Serious: Yes (Hospitalization)
  Sender: FDA-Public Use
  Company Number: 2007-00052

PATIENT
  Age: 9 Year
  Sex: Male
  Weight: 34 kg

DRUGS (4)
  1. TRELSTAR [Suspect]
     Indication: PRECOCIOUS PUBERTY
     Dosage: SEE IMAGE
     Route: 030
     Dates: start: 19940112, end: 19960101
  2. TRELSTAR [Suspect]
     Indication: PRECOCIOUS PUBERTY
     Dosage: SEE IMAGE
     Route: 030
     Dates: start: 19960101, end: 19960101
  3. TRELSTAR [Suspect]
     Indication: PRECOCIOUS PUBERTY
     Dosage: SEE IMAGE
     Route: 030
     Dates: start: 19960101, end: 19960101
  4. DEPAKENE [Suspect]
     Indication: EPILEPSY
     Dosage: ORAL
     Route: 048

REACTIONS (5)
  - BLOOD TESTOSTERONE INCREASED [None]
  - CONDITION AGGRAVATED [None]
  - DRUG INEFFECTIVE FOR UNAPPROVED INDICATION [None]
  - TACHYPHYLAXIS [None]
  - THERAPEUTIC RESPONSE DECREASED [None]
